FAERS Safety Report 12772944 (Version 1)
Quarter: 2016Q3

REPORT INFORMATION
  Report Type: Spontaneous
  Country: US (occurrence: US)
  Receive Date: 20160922
  Receipt Date: 20160922
  Transmission Date: 20161109
  Serious: No
  Sender: FDA-Public Use
  Company Number: US-BIOGEN-2016BI00291295

PATIENT
  Sex: Female

DRUGS (1)
  1. TECFIDERA [Suspect]
     Active Substance: DIMETHYL FUMARATE
     Indication: MULTIPLE SCLEROSIS
     Route: 065
     Dates: start: 20150501

REACTIONS (5)
  - Somnolence [Recovered/Resolved]
  - Feeling abnormal [Unknown]
  - Underdose [Unknown]
  - Flushing [Unknown]
  - Hyperhidrosis [Unknown]
